FAERS Safety Report 19749538 (Version 1)
Quarter: 2021Q3

REPORT INFORMATION
  Report Type: Spontaneous
  Country: NL (occurrence: NL)
  Receive Date: 20210826
  Receipt Date: 20210826
  Transmission Date: 20211014
  Serious: Yes (Other)
  Sender: FDA-Public Use
  Company Number: NL-TEVA-2021-NL-1945013

PATIENT
  Sex: Male
  Weight: 99 kg

DRUGS (8)
  1. CLOPIDOGREL TABLET   75MG / BRAND NAME NOT SPECIFIED [Suspect]
     Active Substance: CLOPIDOGREL BISULFATE
     Indication: PRODUCT USED FOR UNKNOWN INDICATION
     Dosage: 1 DOSAGE FORMS DAILY;  THERAPY END DATE :ASKU
     Dates: start: 202101
  2. PERINDOPRIL TABLET 4MG (ERBUMINE) / BRAND NAME NOT SPECIFIED [Suspect]
     Active Substance: PERINDOPRIL ERBUMINE
     Indication: PRODUCT USED FOR UNKNOWN INDICATION
     Dosage: HEART PROBLEMS,THERAPY END DATE :ASKU
     Dates: start: 202101
  3. ACETYLSALICYLZUUR TABLET  80MG / BRAND NAME NOT SPECIFIED [Suspect]
     Active Substance: ASPIRIN
     Indication: PRODUCT USED FOR UNKNOWN INDICATION
     Dosage: 1 DOSAGE FORMS DAILY;  THERAPY END DATE :ASKU
     Dates: start: 202101
  4. AMIODARON TABLET 200MG / BRAND NAME NOT SPECIFIED [Suspect]
     Active Substance: AMIODARONE
     Indication: PRODUCT USED FOR UNKNOWN INDICATION
     Dosage: 1 DOSAGE FORMS DAILY;  THERAPY END DATE:ASKU
     Dates: start: 202101
  5. TERBINAFINE TABLET 250MG / BRAND NAME NOT SPECIFIED [Suspect]
     Active Substance: TERBINAFINE
     Indication: ONYCHOMYCOSIS
     Dosage: 1 DOSAGE FORMS DAILY; THERAPY END DATE :ASKU
     Dates: start: 202105
  6. PANTOPRAZOL TABLET MSR 40MG / BRAND NAME NOT SPECIFIED [Concomitant]
     Active Substance: PANTOPRAZOLE
     Dosage: 2 DOSAGE FORMS DAILY;  THERAPY END DATE :ASKU
     Dates: start: 2013
  7. SIMVASTATINE TABLET FO 40MG / BRAND NAME NOT SPECIFIED [Suspect]
     Active Substance: SIMVASTATIN
     Indication: PRODUCT USED FOR UNKNOWN INDICATION
     Dosage: 1 DOSAGE FORMS DAILY;  THERAPY END DATE:ASKU
     Dates: start: 202101
  8. METOPROLOL TABLET MGA  50MG (SUCCINAAT) / BRAND NAME NOT SPECIFIED [Suspect]
     Active Substance: METOPROLOL SUCCINATE
     Indication: PRODUCT USED FOR UNKNOWN INDICATION
     Dosage: 1 DOSAGE FORMS DAILY;  THERAPY END DATE :ASKU
     Dates: start: 202101

REACTIONS (7)
  - Pneumonia [Not Recovered/Not Resolved]
  - Malaise [Not Recovered/Not Resolved]
  - Body temperature increased [Not Recovered/Not Resolved]
  - Chills [Recovered/Resolved]
  - Myalgia [Not Recovered/Not Resolved]
  - Fatigue [Not Recovered/Not Resolved]
  - Headache [Recovering/Resolving]
